FAERS Safety Report 24055257 (Version 2)
Quarter: 2024Q4

REPORT INFORMATION
  Report Type: Spontaneous
  Country: CA (occurrence: CA)
  Receive Date: 20240705
  Receipt Date: 20241105
  Transmission Date: 20250114
  Serious: No
  Sender: RECKITT BENCKISER
  Company Number: CA-INDIVIOR US-INDV-145759-2024

PATIENT
  Age: 34 Year
  Sex: Female

DRUGS (2)
  1. SUBLOCADE [Suspect]
     Active Substance: BUPRENORPHINE
     Indication: Drug use disorder
     Dosage: 300 MILLIGRAM, QMO
     Route: 058
  2. SUBLOCADE [Suspect]
     Active Substance: BUPRENORPHINE

REACTIONS (2)
  - Inappropriate schedule of product administration [Recovered/Resolved]
  - Drug dependence [Unknown]
